FAERS Safety Report 8721395 (Version 4)
Quarter: 2015Q2

REPORT INFORMATION
  Report Type: Spontaneous
  Country: US (occurrence: US)
  Receive Date: 20120813
  Receipt Date: 20150616
  Transmission Date: 20150821
  Serious: Yes (Death, Hospitalization)
  Sender: FDA-Public Use
  Company Number: US-SANOFI-AVENTIS-2012SA057980

PATIENT
  Age: 77 Year
  Sex: Male

DRUGS (5)
  1. ASPIRIN. [Suspect]
     Active Substance: ASPIRIN
     Route: 065
     Dates: start: 2011
  2. PLAVIX [Suspect]
     Active Substance: CLOPIDOGREL BISULFATE
     Indication: ACUTE CORONARY SYNDROME
     Dosage: THERAPY END DATE JUN 11
     Route: 048
     Dates: start: 201108, end: 20111017
  3. PLAVIX [Suspect]
     Active Substance: CLOPIDOGREL BISULFATE
     Indication: PERIPHERAL ARTERIAL OCCLUSIVE DISEASE
     Dosage: THERAPY END DATE JUN 11
     Route: 048
     Dates: start: 20110601
  4. PLAVIX [Suspect]
     Active Substance: CLOPIDOGREL BISULFATE
     Indication: ACUTE CORONARY SYNDROME
     Dosage: THERAPY END DATE JUN 11
     Route: 048
     Dates: start: 20110601
  5. PLAVIX [Suspect]
     Active Substance: CLOPIDOGREL BISULFATE
     Indication: PERIPHERAL ARTERIAL OCCLUSIVE DISEASE
     Dosage: THERAPY END DATE JUN 11
     Route: 048
     Dates: start: 201108, end: 20111017

REACTIONS (3)
  - Multiple injuries [Fatal]
  - Gastrointestinal haemorrhage [Fatal]
  - Ulcer [Fatal]

NARRATIVE: CASE EVENT DATE: 20111017
